FAERS Safety Report 21722741 (Version 5)
Quarter: 2023Q4

REPORT INFORMATION
  Report Type: Report from Study
  Country: CA (occurrence: CA)
  Receive Date: 20221213
  Receipt Date: 20231215
  Transmission Date: 20240109
  Serious: Yes (Hospitalization, Other)
  Sender: FDA-Public Use
  Company Number: CA-TAKEDA-2022TUS096310

PATIENT
  Age: 67 Year
  Sex: Female
  Weight: 62 kg

DRUGS (16)
  1. HUMAN IMMUNOGLOBULIN G [Suspect]
     Active Substance: HUMAN IMMUNOGLOBULIN G
     Indication: Primary immunodeficiency syndrome
     Dosage: 12 GRAM, 1/WEEK
     Route: 065
     Dates: start: 20190515
  2. HUMAN IMMUNOGLOBULIN G [Suspect]
     Active Substance: HUMAN IMMUNOGLOBULIN G
     Indication: Bacterial infection
     Dosage: 9 GRAM, 1/WEEK
     Route: 058
  3. HUMAN IMMUNOGLOBULIN G [Suspect]
     Active Substance: HUMAN IMMUNOGLOBULIN G
     Indication: Immunodeficiency common variable
     Dosage: 9 GRAM, 1/WEEK
     Route: 050
  4. CANDESARTAN [Concomitant]
     Active Substance: CANDESARTAN
  5. PREDNISONE [Concomitant]
     Active Substance: PREDNISONE
  6. XELJANZ [Concomitant]
     Active Substance: TOFACITINIB CITRATE
  7. DULOXETINE HYDROCHLORIDE [Concomitant]
     Active Substance: DULOXETINE HYDROCHLORIDE
  8. PILOCARPINE [Concomitant]
     Active Substance: PILOCARPINE
  9. ROSUVASTATIN [Concomitant]
     Active Substance: ROSUVASTATIN
  10. DENOSUMAB [Concomitant]
     Active Substance: DENOSUMAB
  11. HUMAN IMMUNOGLOBULIN G [Concomitant]
     Active Substance: HUMAN IMMUNOGLOBULIN G
     Dosage: UNK
     Route: 042
  12. ALBUTEROL [Concomitant]
     Active Substance: ALBUTEROL
  13. MOMETASONE [Concomitant]
     Active Substance: MOMETASONE
  14. ARAVA [Concomitant]
     Active Substance: LEFLUNOMIDE
     Dosage: 20 MILLIGRAM, QD
     Route: 065
  15. Covid-19 vaccine [Concomitant]
     Indication: COVID-19 immunisation
  16. LEFLUNOMIDE [Concomitant]
     Active Substance: LEFLUNOMIDE
     Dosage: 20 MILLIGRAM, QD
     Route: 065

REACTIONS (12)
  - Fall [Unknown]
  - Cerebrovascular accident [Unknown]
  - Speech disorder [Unknown]
  - Dysphagia [Unknown]
  - Localised infection [Unknown]
  - Hypoglossal nerve disorder [Unknown]
  - Illness [Unknown]
  - Contusion [Unknown]
  - Pain [Unknown]
  - Arthralgia [Unknown]
  - Fatigue [Unknown]
  - Product use in unapproved indication [Unknown]

NARRATIVE: CASE EVENT DATE: 20211201
